FAERS Safety Report 21222762 (Version 1)
Quarter: 2022Q3

REPORT INFORMATION
  Report Type: Spontaneous
  Country: SE (occurrence: SE)
  Receive Date: 20220817
  Receipt Date: 20220817
  Transmission Date: 20221027
  Serious: Yes (Other)
  Sender: FDA-Public Use
  Company Number: SE-OTSUKA-2021_009942

PATIENT

DRUGS (1)
  1. ABILIFY [Suspect]
     Active Substance: ARIPIPRAZOLE
     Indication: Product used for unknown indication
     Dosage: UNK
     Route: 065

REACTIONS (6)
  - Dependence [Unknown]
  - Emotional disorder [Unknown]
  - Behaviour disorder [Unknown]
  - Skin burning sensation [Unknown]
  - Thinking abnormal [Unknown]
  - Palpitations [Unknown]
